FAERS Safety Report 8214835-0 (Version None)
Quarter: 2012Q1

REPORT INFORMATION
  Report Type: 
  Country: None (occurrence: None)
  Receive Date: 20120316
  Receipt Date: 20120307
  Transmission Date: 20120608
  Serious: Yes (Hospitalization, Other)
  Sender: FDA-Public Use
  Company Number: FR-JNJFOC-20120305567

PATIENT
  Sex: Male

DRUGS (1)
  1. STELARA [Suspect]
     Indication: PSORIASIS
     Dosage: TREATMENT INITIATED AT LEASE 6 MONTHS BEFORE REPORT
     Route: 058

REACTIONS (1)
  - MONOCLONAL IMMUNOGLOBULIN PRESENT [None]
